FAERS Safety Report 5293976-4 (Version None)
Quarter: 2007Q2

REPORT INFORMATION
  Report Type: 
  Country: None (occurrence: None)
  Receive Date: 20070405
  Receipt Date: 20070321
  Transmission Date: 20071010
  Serious: Yes (Hospitalization)
  Sender: FDA-Public Use
  Company Number: T200700346

PATIENT
  Age: 52 Year
  Sex: Male
  Weight: 97.5 kg

DRUGS (10)
  1. MORPHINE EXTENDED RELEASE (MORPHINE SULFATE) TABLET, 30MG [Suspect]
     Indication: PROCEDURAL PAIN
     Dosage: 30 MG, Q12H, ORAL
     Route: 048
     Dates: start: 20070315, end: 20070318
  2. MORPHINE [Suspect]
     Dosage: 15MG, Q12H, ORAL
     Route: 048
     Dates: start: 20070318, end: 20070320
  3. TRAMADOL HCL [Suspect]
     Indication: PROCEDURAL PAIN
     Dosage: 50 MG, BID, ORAL
     Route: 048
     Dates: start: 20070315, end: 20070320
  4. METOPROLOL (METOPROLOL) UNKNOWN [Concomitant]
  5. TRIAMTERENE AND HYDROCHLOROTHIAZID (HYDROCHLOROTHIAZIDE, TRIAMTERENE) [Concomitant]
  6. PAXIL [Concomitant]
  7. NEURONTIN [Concomitant]
  8. DILAUDID [Concomitant]
  9. VALIUM /00017001/ (DIAZEPAM) [Concomitant]
  10. PERCOCET [Concomitant]

REACTIONS (4)
  - ARTHRALGIA [None]
  - DYSKINESIA [None]
  - HALLUCINATION [None]
  - PAIN IN EXTREMITY [None]
